FAERS Safety Report 5525105-3 (Version None)
Quarter: 2007Q4

REPORT INFORMATION
  Report Type: 
  Country: None (occurrence: None)
  Receive Date: 20071119
  Receipt Date: 20071108
  Transmission Date: 20080405
  Serious: Yes (Life-Threatening, Hospitalization, Other)
  Sender: FDA-Public Use
  Company Number: 20074249

PATIENT
  Age: 53 Year
  Sex: Male

DRUGS (5)
  1. LIORESAL [Suspect]
     Indication: MUSCLE SPASTICITY
     Dosage: MCG, DAILY, INTRATHECAL
  2. PREDNISONE TAB [Concomitant]
  3. LOVENOX [Concomitant]
  4. PREVACID [Concomitant]
  5. NPH INSULIN [Concomitant]

REACTIONS (18)
  - ABDOMINAL DISTENSION [None]
  - ABDOMINAL PAIN [None]
  - ABDOMINAL TENDERNESS [None]
  - ARTERIAL HAEMORRHAGE [None]
  - ARTERIAL INJURY [None]
  - BLADDER DISORDER [None]
  - BLOOD PRESSURE DECREASED [None]
  - ESCHERICHIA INFECTION [None]
  - HEART RATE INCREASED [None]
  - HYDRONEPHROSIS [None]
  - INJURY [None]
  - INTRA-ABDOMINAL HAEMATOMA [None]
  - MEDICAL DEVICE CHANGE [None]
  - MEDICAL DEVICE COMPLICATION [None]
  - PELVIC HAEMATOMA [None]
  - PYURIA [None]
  - RETROPERITONEAL HAEMATOMA [None]
  - URINARY RETENTION [None]
